FAERS Safety Report 5875523-9 (Version None)
Quarter: 2008Q3

REPORT INFORMATION
  Report Type: 
  Country: None (occurrence: None)
  Receive Date: 20080909
  Receipt Date: 20080828
  Transmission Date: 20090109
  Serious: Yes (Hospitalization, Other)
  Sender: FDA-Public Use
  Company Number: CH-ELI_LILLY_AND_COMPANY-CH200808006085

PATIENT
  Age: 44 Year
  Sex: Male

DRUGS (4)
  1. ZYPREXA [Suspect]
     Indication: BIPOLAR DISORDER
     Dosage: 15 MG, DAILY (1/D)
     Dates: start: 20080804
  2. LITHIOFOR [Concomitant]
     Indication: BIPOLAR DISORDER
     Dosage: 660 MG, 2/D
     Route: 048
     Dates: start: 20010101
  3. FLUVOXAMINE MALEATE [Interacting]
     Dosage: 300 MG, DAILY (1/D)
     Dates: start: 20010101
  4. RIVOTRIL [Concomitant]
     Dosage: 1 MG, DAILY (1/D)
     Route: 048

REACTIONS (5)
  - DRUG INTERACTION [None]
  - ELECTROCARDIOGRAM ABNORMAL [None]
  - ELECTROCARDIOGRAM REPOLARISATION ABNORMALITY [None]
  - ELECTROCARDIOGRAM U-WAVE ABNORMALITY [None]
  - HOSPITALISATION [None]
